FAERS Safety Report 6783091-2 (Version None)
Quarter: 2010Q2

REPORT INFORMATION
  Report Type: 
  Country: None (occurrence: None)
  Receive Date: 20100622
  Receipt Date: 20100616
  Transmission Date: 20101027
  Serious: Yes (Hospitalization, Other)
  Sender: FDA-Public Use
  Company Number: US-BAYER-201022758NA

PATIENT
  Age: 68 Year
  Sex: Female

DRUGS (1)
  1. BETASERON [Suspect]
     Indication: DRUG USE FOR UNKNOWN INDICATION
     Route: 065
     Dates: start: 20030101

REACTIONS (7)
  - BALANCE DISORDER [None]
  - CONFUSIONAL STATE [None]
  - GASTRIC DISORDER [None]
  - MENTAL DISORDER DUE TO A GENERAL MEDICAL CONDITION [None]
  - MULTIPLE SCLEROSIS RELAPSE [None]
  - THINKING ABNORMAL [None]
  - VISUAL IMPAIRMENT [None]
